FAERS Safety Report 8557262-9 (Version None)
Quarter: 2012Q3

REPORT INFORMATION
  Report Type: 
  Country: None (occurrence: None)
  Receive Date: 20120801
  Receipt Date: 20120725
  Transmission Date: 20120928
  Serious: Yes (Disabling, Other)
  Sender: FDA-Public Use
  Company Number: US-BAYER-2012-053817

PATIENT
  Age: 39 Year
  Sex: Female

DRUGS (1)
  1. MAGNEVIST [Suspect]
     Indication: NUCLEAR MAGNETIC RESONANCE IMAGING ABDOMINAL
     Dosage: UNK
     Dates: start: 20000413, end: 20000413

REACTIONS (11)
  - MUSCULOSKELETAL DISCOMFORT [None]
  - NEPHROGENIC SYSTEMIC FIBROSIS [None]
  - ARTHRALGIA [None]
  - ANXIETY [None]
  - INJURY [None]
  - RASH [None]
  - SKIN HYPERPIGMENTATION [None]
  - SKIN INDURATION [None]
  - FIBROSIS [None]
  - PAIN [None]
  - SKIN PLAQUE [None]
